FAERS Safety Report 9637535 (Version 1)
Quarter: 2013Q4

REPORT INFORMATION
  Report Type: Report from Study
  Country: CA (occurrence: CA)
  Receive Date: 20131022
  Receipt Date: 20131022
  Transmission Date: 20140711
  Serious: Yes (Other)
  Sender: FDA-Public Use
  Company Number: CA-JNJFOC-20131009966

PATIENT
  Age: 57 Year
  Sex: Male
  Weight: 63.1 kg

DRUGS (5)
  1. REMICADE [Suspect]
     Indication: CROHN^S DISEASE
     Route: 042
     Dates: start: 20130514
  2. LOSEC [Concomitant]
     Route: 065
  3. FOLIC ACID [Concomitant]
     Route: 065
  4. ALENDRONATE [Concomitant]
     Route: 065
  5. FOSAMAX [Concomitant]
     Route: 065

REACTIONS (1)
  - Cyst [Unknown]
